FAERS Safety Report 23634408 (Version 2)
Quarter: 2024Q2

REPORT INFORMATION
  Report Type: Spontaneous
  Country: FR (occurrence: FR)
  Receive Date: 20240314
  Receipt Date: 20240403
  Transmission Date: 20240715
  Serious: Yes (Other)
  Sender: FDA-Public Use
  Company Number: None

PATIENT
  Age: 73 Year
  Sex: Female

DRUGS (2)
  1. STELARA [Suspect]
     Active Substance: USTEKINUMAB
     Indication: Crohn^s disease
     Route: 042
     Dates: start: 202205
  2. SALAZOPYRINE [Suspect]
     Active Substance: SULFASALAZINE
     Indication: Crohn^s disease
     Route: 048
     Dates: start: 202210

REACTIONS (2)
  - Peripheral sensory neuropathy [Unknown]
  - Off label use [Unknown]

NARRATIVE: CASE EVENT DATE: 20230501
